FAERS Safety Report 9320809 (Version 1)
Quarter: 2013Q2

REPORT INFORMATION
  Report Type: Spontaneous
  Country: OM (occurrence: None)
  Receive Date: 20130528
  Receipt Date: 20130528
  Transmission Date: 20140414
  Serious: Yes (Other)
  Sender: FDA-Public Use
  Company Number: 2012AP000762

PATIENT
  Age: 4 Year
  Sex: Male

DRUGS (2)
  1. FERRIPROX [Suspect]
     Indication: THALASSAEMIA BETA
     Route: 048
  2. DESFERRIOXAMINE [Concomitant]

REACTIONS (3)
  - Agranulocytosis [None]
  - Sepsis [None]
  - Pneumonia klebsiella [None]
